FAERS Safety Report 5036121-2 (Version None)
Quarter: 2006Q2

REPORT INFORMATION
  Report Type: 
  Country: None (occurrence: None)
  Receive Date: 20060601
  Receipt Date: 20060421
  Transmission Date: 20061013
  Serious: No
  Sender: FDA-Public Use
  Company Number: US200604003513

PATIENT
  Age: 56 Year
  Sex: Male

DRUGS (7)
  1. CYMBALTA [Suspect]
     Indication: DEPRESSION
     Dosage: 30 MG
     Dates: start: 20060419
  2. SYNTHROID [Concomitant]
  3. NEXIUM [Concomitant]
  4. GLUCOPHAGE ^UNS^ (METFORMIN HYDROCHLORIDE) [Concomitant]
  5. AVANDIA [Concomitant]
  6. LIPITOR [Concomitant]
  7. XALATAN /SWE/ (LATANOPROST) [Concomitant]

REACTIONS (3)
  - FATIGUE [None]
  - INSOMNIA [None]
  - THINKING ABNORMAL [None]
